FAERS Safety Report 9831741 (Version 1)
Quarter: 2014Q1

REPORT INFORMATION
  Report Type: Spontaneous
  Country: US (occurrence: US)
  Receive Date: 20140121
  Receipt Date: 20140121
  Transmission Date: 20141002
  Serious: No
  Sender: FDA-Public Use
  Company Number: US-PFIZER INC-2014012711

PATIENT
  Age: 73 Year
  Sex: Female

DRUGS (4)
  1. NORVASC [Suspect]
     Dosage: UNK
  2. CIPRO [Suspect]
     Dosage: UNK
  3. RANITIDINE [Suspect]
     Dosage: UNK
  4. FOSAMAX [Suspect]
     Dosage: UNK

REACTIONS (2)
  - Drug hypersensitivity [Unknown]
  - Food allergy [Unknown]
